FAERS Safety Report 15451737 (Version 1)
Quarter: 2018Q4

REPORT INFORMATION
  Report Type: Report from Study
  Country: CO (occurrence: CO)
  Receive Date: 20181001
  Receipt Date: 20181001
  Transmission Date: 20190204
  Serious: Yes (Hospitalization, Disabling)
  Sender: FDA-Public Use
  Company Number: PHHY2018CO107585

PATIENT
  Sex: Female
  Weight: 40 kg

DRUGS (1)
  1. REVOLADE [Suspect]
     Active Substance: ELTROMBOPAG
     Indication: IMMUNE THROMBOCYTOPENIC PURPURA
     Dosage: 50 MG, QD
     Route: 048
     Dates: start: 20180820

REACTIONS (5)
  - Gastritis [Unknown]
  - Pain [Unknown]
  - Dyspepsia [Unknown]
  - Malaise [Unknown]
  - Arthralgia [Unknown]
